FAERS Safety Report 11008565 (Version 1)
Quarter: 2015Q2

REPORT INFORMATION
  Report Type: Spontaneous
  Country: US (occurrence: None)
  Receive Date: 20150409
  Receipt Date: 20150409
  Transmission Date: 20150821
  Serious: Yes (Other)
  Sender: FDA-Public Use
  Company Number: None

PATIENT
  Sex: Female

DRUGS (1)
  1. BUPROPION [Suspect]
     Active Substance: BUPROPION
     Indication: DEPRESSION
     Dosage: 1 QD PO
     Route: 048
     Dates: start: 201105

REACTIONS (3)
  - Drug hypersensitivity [None]
  - Product substitution issue [None]
  - Reaction to drug excipients [None]
